FAERS Safety Report 8930481 (Version 3)
Quarter: 2013Q2

REPORT INFORMATION
  Report Type: Spontaneous
  Country: US (occurrence: US)
  Receive Date: 20121128
  Receipt Date: 20130405
  Transmission Date: 20140414
  Serious: No
  Sender: FDA-Public Use
  Company Number: US-009507513-1211USA007188

PATIENT
  Sex: Female
  Weight: 124.72 kg

DRUGS (2)
  1. IMPLANON [Suspect]
     Indication: CONTRACEPTION
     Dosage: 1 UNK, UNK
  2. IMPLANON [Suspect]
     Dosage: 1 DF, UNK
     Route: 058
     Dates: start: 20120921, end: 20121108

REACTIONS (3)
  - Implant site pain [Recovered/Resolved]
  - Device breakage [Unknown]
  - Metrorrhagia [Unknown]
